FAERS Safety Report 9029586 (Version 2)
Quarter: 2013Q3

REPORT INFORMATION
  Report Type: Report from Study
  Country: JP (occurrence: JP)
  Receive Date: 20130125
  Receipt Date: 20130823
  Transmission Date: 20140515
  Serious: Yes (Other)
  Sender: FDA-Public Use
  Company Number: JP-009507513-1112USA02725

PATIENT
  Age: 61 Year
  Sex: Male

DRUGS (1)
  1. TAPROS [Suspect]
     Indication: NORMAL TENSION GLAUCOMA
     Dosage: STRENGTH 15UG/ML, 2 DROPS QD
     Route: 047
     Dates: start: 20101022, end: 20120618

REACTIONS (2)
  - Retinal detachment [Recovered/Resolved]
  - Retinal detachment [Recovered/Resolved]
